FAERS Safety Report 23728596 (Version 1)
Quarter: 2024Q2

REPORT INFORMATION
  Report Type: Spontaneous
  Country: US (occurrence: US)
  Receive Date: 20240410
  Receipt Date: 20240410
  Transmission Date: 20240716
  Serious: No
  Sender: FDA-Public Use
  Company Number: US-Merz Pharmaceuticals GmbH-24-01094

PATIENT
  Sex: Female

DRUGS (1)
  1. XEOMIN [Suspect]
     Active Substance: INCOBOTULINUMTOXINA
     Indication: Headache

REACTIONS (9)
  - Irritable bowel syndrome [Unknown]
  - Neck pain [Unknown]
  - Sleep disorder [Unknown]
  - Vomiting [Unknown]
  - Fatigue [Unknown]
  - Anxiety [Unknown]
  - Nausea [Unknown]
  - Product dose omission issue [Unknown]
  - Off label use [Unknown]
